FAERS Safety Report 9734261 (Version 1)
Quarter: 2013Q4

REPORT INFORMATION
  Report Type: Report from Study
  Country: GB (occurrence: GB)
  Receive Date: 20131205
  Receipt Date: 20131205
  Transmission Date: 20140711
  Serious: Yes (Hospitalization)
  Sender: FDA-Public Use
  Company Number: GB-ROCHE-1311457

PATIENT
  Sex: Female
  Weight: 84 kg

DRUGS (10)
  1. TOCILIZUMAB [Suspect]
     Indication: RHEUMATOID ARTHRITIS
     Dosage: LAST DOSE:28/AUG/2013
     Route: 065
     Dates: start: 20120420
  2. MORPHINE SULFATE [Concomitant]
     Dosage: 10 MG IN 5 ML SOLUTION
     Route: 048
  3. BISOPROLOL [Concomitant]
     Dosage: ONCE IN THE MORNING
     Route: 048
  4. ASPIRIN [Concomitant]
     Dosage: ONCE IN MORNING
     Route: 048
  5. RAMIPRIL [Concomitant]
     Route: 065
  6. DOXAZOSIN [Concomitant]
     Dosage: ONCE IN MORNING
     Route: 048
  7. LANSOPRAZOLE [Concomitant]
     Route: 065
  8. NICOTINELL [Concomitant]
     Route: 061
  9. PARACETAMOL [Concomitant]
     Route: 065
  10. ATORVASTATIN [Concomitant]
     Route: 048

REACTIONS (1)
  - Peripheral ischaemia [Unknown]
